FAERS Safety Report 18651106 (Version 6)
Quarter: 2022Q1

REPORT INFORMATION
  Report Type: Report from Study
  Country: US (occurrence: US)
  Receive Date: 20201222
  Receipt Date: 20220325
  Transmission Date: 20220423
  Serious: No
  Sender: FDA-Public Use
  Company Number: US-NOVARTISTESTPH-NVSC2020US336915

PATIENT
  Age: 0 Year
  Sex: Female

DRUGS (2)
  1. ZOLGENSMA [Suspect]
     Active Substance: ONASEMNOGENE ABEPARVOVEC-XIOI
     Indication: Spinal muscular atrophy
     Dosage: 1.1 KG (VECTOR GENOMES)
     Route: 042
     Dates: start: 20201215, end: 20201215
  2. ZOLGENSMA [Suspect]
     Active Substance: ONASEMNOGENE ABEPARVOVEC-XIOI
     Dosage: 1.1 KG ONE SINGLE DOSE (1.1X10^14VG/KG)
     Route: 042
     Dates: start: 20201215

REACTIONS (4)
  - Reflexes abnormal [Unknown]
  - Pyrexia [Recovered/Resolved]
  - Laryngeal disorder [Unknown]
  - Dysphagia [Unknown]

NARRATIVE: CASE EVENT DATE: 20201215
